FAERS Safety Report 6671558-7 (Version None)
Quarter: 2010Q2

REPORT INFORMATION
  Report Type: 
  Country: None (occurrence: None)
  Receive Date: 20100407
  Receipt Date: 20100331
  Transmission Date: 20101027
  Serious: Yes (Hospitalization)
  Sender: FDA-Public Use
  Company Number: US-PURDUE-USA-2010-0042980

PATIENT
  Sex: Female

DRUGS (2)
  1. OXYCONTIN [Suspect]
     Indication: PSORIATIC ARTHROPATHY
     Dosage: 30 MG, Q12H
     Route: 048
     Dates: start: 20090101
  2. PERCOCET [Concomitant]
     Indication: BREAKTHROUGH PAIN
     Dosage: UNK

REACTIONS (2)
  - CHOLELITHIASIS [None]
  - SMALL INTESTINAL OBSTRUCTION [None]
